FAERS Safety Report 22028231 (Version 1)
Quarter: 2023Q1

REPORT INFORMATION
  Report Type: Spontaneous
  Country: US (occurrence: None)
  Receive Date: 20230223
  Receipt Date: 20230223
  Transmission Date: 20230417
  Serious: No
  Sender: FDA-Public Use
  Company Number: US-ROCHE-3051825

PATIENT
  Age: 62 Year
  Sex: Female
  Weight: 74.910 kg

DRUGS (8)
  1. NUTROPIN [Suspect]
     Active Substance: SOMATROPIN
     Indication: Hormone replacement therapy
     Route: 058
     Dates: start: 20220102
  2. NUTROPIN [Suspect]
     Active Substance: SOMATROPIN
  3. NUTROPIN [Suspect]
     Active Substance: SOMATROPIN
     Route: 058
     Dates: start: 20220102
  4. NUTROPIN [Suspect]
     Active Substance: SOMATROPIN
  5. NUTROPIN [Suspect]
     Active Substance: SOMATROPIN
     Route: 058
     Dates: start: 20220311
  6. NUTROPIN [Suspect]
     Active Substance: SOMATROPIN
  7. SYNTHROID [Suspect]
     Active Substance: LEVOTHYROXINE SODIUM
     Indication: Hormone replacement therapy
     Route: 048
     Dates: start: 20210701, end: 20220210
  8. SYNTHROID [Suspect]
     Active Substance: LEVOTHYROXINE SODIUM
     Route: 048
     Dates: start: 20220211

REACTIONS (12)
  - Injection site haemorrhage [Recovered/Resolved]
  - Arthralgia [Unknown]
  - Peripheral swelling [Unknown]
  - Musculoskeletal stiffness [Unknown]
  - Device malfunction [Unknown]
  - Fatigue [Recovering/Resolving]
  - Tri-iodothyronine decreased [Unknown]
  - Weight increased [Unknown]
  - Swelling [Unknown]
  - Anxiety [Unknown]
  - Stress [Unknown]
  - Insomnia [Unknown]

NARRATIVE: CASE EVENT DATE: 20220101
